FAERS Safety Report 5388021-6 (Version None)
Quarter: 2007Q3

REPORT INFORMATION
  Report Type: 
  Country: None (occurrence: None)
  Receive Date: 20070716
  Receipt Date: 20070705
  Transmission Date: 20080115
  Serious: Yes (Hospitalization, Other)
  Sender: FDA-Public Use
  Company Number: US-MERCK-0705USA03245

PATIENT
  Age: 6 Year
  Sex: Male
  Weight: 29 kg

DRUGS (2)
  1. SINGULAIR [Suspect]
     Indication: ASTHMA
     Route: 048
     Dates: start: 20061121, end: 20070504
  2. ALBUTEROL [Concomitant]

REACTIONS (19)
  - ANGER [None]
  - ARTHRALGIA [None]
  - ATHETOSIS [None]
  - AURA [None]
  - CLONUS [None]
  - CONSTIPATION [None]
  - CONVULSION [None]
  - DIARRHOEA [None]
  - DYSKINESIA [None]
  - FATIGUE [None]
  - FEELING COLD [None]
  - FLUSHING [None]
  - HALLUCINATION, AUDITORY [None]
  - HALLUCINATION, VISUAL [None]
  - HEADACHE [None]
  - MIGRAINE [None]
  - MUSCULAR WEAKNESS [None]
  - NIGHTMARE [None]
  - PAROSMIA [None]
